FAERS Safety Report 10761118 (Version 2)
Quarter: 2015Q1

REPORT INFORMATION
  Report Type: Spontaneous
  Country: US (occurrence: None)
  Receive Date: 20150202
  Receipt Date: 20150212
  Transmission Date: 20150721
  Serious: No
  Sender: FDA-Public Use
  Company Number: 2015SA004070

PATIENT
  Age: 21 Year
  Sex: Female

DRUGS (2)
  1. LANTUS SOLOSTAR [Suspect]
     Active Substance: INSULIN GLARGINE
     Indication: TYPE 1 DIABETES MELLITUS
     Dosage: PARENTERAL
     Dates: start: 2007
  2. SOLOSTAR [Concomitant]
     Active Substance: DEVICE

REACTIONS (6)
  - Cerebrovascular accident [None]
  - Off label use [None]
  - Blood glucose increased [None]
  - Product quality issue [None]
  - Confusional state [None]
  - Device defective [None]
